FAERS Safety Report 6903453-X (Version None)
Quarter: 2010Q3

REPORT INFORMATION
  Report Type: 
  Country: None (occurrence: None)
  Receive Date: 20100803
  Receipt Date: 20081007
  Transmission Date: 20110219
  Serious: Yes (Other)
  Sender: FDA-Public Use
  Company Number: US-PFIZER INC-2008060490

PATIENT
  Sex: Female
  Weight: 95.7 kg

DRUGS (14)
  1. LYRICA [Suspect]
     Indication: FIBROMYALGIA
     Dates: start: 20080703, end: 20080716
  2. MONTELUKAST SODIUM [Suspect]
     Indication: ASTHMA
     Dates: start: 20080703, end: 20080716
  3. LEVAQUIN [Suspect]
     Indication: LUNG INFECTION
  4. ATENOLOL [Concomitant]
  5. ACIPHEX [Concomitant]
  6. TOPAMAX [Concomitant]
  7. VYTORIN [Concomitant]
     Dosage: 10/20 MG. DAILY
  8. CYMBALTA [Concomitant]
  9. POTASSIUM CHLORIDE [Concomitant]
  10. ADVAIR DISKUS 100/50 [Concomitant]
     Indication: ASTHMA
     Dosage: 250/50
  11. PROVENTIL GENTLEHALER [Concomitant]
  12. OMEGA-3 TRIGLYCERIDES [Concomitant]
  13. VITAMIN E [Concomitant]
  14. ECHINACEA [Concomitant]

REACTIONS (11)
  - ASTHENIA [None]
  - CHEST PAIN [None]
  - DIZZINESS [None]
  - DYSPNOEA [None]
  - FIBROMYALGIA [None]
  - JOINT SWELLING [None]
  - LUNG INFECTION [None]
  - NAUSEA [None]
  - OEDEMA PERIPHERAL [None]
  - PO2 DECREASED [None]
  - PRESYNCOPE [None]
